FAERS Safety Report 11838073 (Version 1)
Quarter: 2015Q4

REPORT INFORMATION
  Report Type: Spontaneous
  Country: US (occurrence: US)
  Receive Date: 20151215
  Receipt Date: 20151215
  Transmission Date: 20160305
  Serious: Yes (Life-Threatening)
  Sender: FDA-Public Use
  Company Number: PHHY2015US163785

PATIENT
  Age: 7 Year
  Sex: Male

DRUGS (1)
  1. ZOLEDRONATE [Suspect]
     Active Substance: ZOLEDRONIC ACID
     Indication: BONE DENSITY DECREASED
     Dosage: 0.013 MG/KG, UNK
     Route: 042

REACTIONS (15)
  - Abdominal distension [Unknown]
  - Pulmonary haemorrhage [Unknown]
  - Diarrhoea [Unknown]
  - Hypotension [Unknown]
  - Leukopenia [Unknown]
  - C-reactive protein increased [Unknown]
  - Metabolic acidosis [Unknown]
  - Product use issue [Unknown]
  - Tachycardia [Unknown]
  - Systemic inflammatory response syndrome [Unknown]
  - Coagulation test abnormal [Unknown]
  - Shock [Unknown]
  - Acute respiratory distress syndrome [Unknown]
  - Pyrexia [Unknown]
  - Thrombocytopenia [Unknown]
